FAERS Safety Report 10416294 (Version 2)
Quarter: 2014Q3

REPORT INFORMATION
  Report Type: Spontaneous
  Country: US (occurrence: US)
  Receive Date: 20140828
  Receipt Date: 20140828
  Transmission Date: 20150326
  Serious: Yes (Hospitalization, Other)
  Sender: FDA-Public Use
  Company Number: US-009507513-2009SP017431

PATIENT
  Sex: Female

DRUGS (2)
  1. NUVARING [Suspect]
     Active Substance: ETHINYL ESTRADIOL\ETONOGESTREL
     Indication: CONTRACEPTION
     Dosage: UNK UNK, QM
     Route: 067
     Dates: start: 200510, end: 20060901
  2. ACETAMINOPHEN (+) HYDROCODONE BITARTRATE [Concomitant]
     Active Substance: ACETAMINOPHEN\HYDROCODONE
     Indication: PRODUCT USED FOR UNKNOWN INDICATION
     Route: 048
     Dates: start: 20060817

REACTIONS (10)
  - Skin cancer [Recovered/Resolved]
  - Uterine haemorrhage [Unknown]
  - Pain [Unknown]
  - Melanocytic naevus [Recovered/Resolved]
  - Seborrhoeic dermatitis [Unknown]
  - Pulmonary embolism [Unknown]
  - Impaired healing [Recovered/Resolved]
  - Lipoma [Recovered/Resolved]
  - Postoperative wound infection [Recovered/Resolved]
  - Headache [Unknown]

NARRATIVE: CASE EVENT DATE: 20060901
